FAERS Safety Report 5827152-0 (Version None)
Quarter: 2008Q3

REPORT INFORMATION
  Report Type: 
  Country: None (occurrence: None)
  Receive Date: 20080729
  Receipt Date: 20080729
  Transmission Date: 20090109
  Serious: No
  Sender: FDA-Public Use
  Company Number: None

PATIENT
  Age: 79 Year
  Sex: Female
  Weight: 55.79 kg

DRUGS (1)
  1. AZACTAM [Suspect]
     Indication: ABDOMINAL ABSCESS
     Dosage: 2 GM EVERY 12 HOURS IV, OPEN ENDED ORDER
     Route: 042
     Dates: start: 20080626, end: 20080630

REACTIONS (1)
  - ADVERSE DRUG REACTION [None]
